FAERS Safety Report 4759064-8 (Version None)
Quarter: 2005Q3

REPORT INFORMATION
  Report Type: 
  Country: None (occurrence: None)
  Receive Date: 20050901
  Receipt Date: 20050823
  Transmission Date: 20060218
  Serious: Yes (Hospitalization, Other)
  Sender: FDA-Public Use
  Company Number: PHBS2005US12516

PATIENT
  Age: 43 Year
  Sex: Female

DRUGS (2)
  1. CARBAMAZEPINE [Suspect]
     Indication: COMPLEX PARTIAL SEIZURES
  2. LAMOTRIGINE [Suspect]
     Indication: COMPLEX PARTIAL SEIZURES

REACTIONS (12)
  - COMPLEX PARTIAL SEIZURES [None]
  - DRUG EXPOSURE DURING PREGNANCY [None]
  - FALL [None]
  - FOETAL DISTRESS SYNDROME [None]
  - FOETAL HEART RATE DECELERATION [None]
  - HYPERHIDROSIS [None]
  - HYPOXIA [None]
  - MUSCLE TWITCHING [None]
  - NORMAL NEWBORN [None]
  - OXYGEN SATURATION DECREASED [None]
  - PALLOR [None]
  - TACHYCARDIA [None]
